FAERS Safety Report 9702140 (Version 1)
Quarter: 2013Q4

REPORT INFORMATION
  Report Type: Spontaneous
  Country: GB (occurrence: GB)
  Receive Date: 20131121
  Receipt Date: 20131121
  Transmission Date: 20140711
  Serious: Yes (Hospitalization)
  Sender: FDA-Public Use
  Company Number: PHHY2013GB132909

PATIENT
  Age: 65 Year
  Sex: Female

DRUGS (2)
  1. TRAMADOL [Suspect]
     Indication: ABDOMINAL PAIN
     Dosage: 100 MG, QID 50 -100MG
     Route: 048
     Dates: start: 20131104, end: 20131106
  2. WARFARIN [Interacting]
     Indication: ATRIAL FIBRILLATION

REACTIONS (2)
  - International normalised ratio increased [Recovering/Resolving]
  - Labelled drug-drug interaction medication error [Unknown]
